FAERS Safety Report 16076869 (Version 2)
Quarter: 2019Q2

REPORT INFORMATION
  Report Type: Report from Study
  Country: US (occurrence: US)
  Receive Date: 20190315
  Receipt Date: 20190403
  Transmission Date: 20190711
  Serious: Yes (Hospitalization)
  Sender: FDA-Public Use
  Company Number: US-ASTRAZENECA-2019SE18747

PATIENT
  Age: 75 Year
  Sex: Male

DRUGS (27)
  1. ACALABRUTINIB. [Suspect]
     Active Substance: ACALABRUTINIB
     Indication: MANTLE CELL LYMPHOMA STAGE IV
     Route: 048
     Dates: start: 20181128, end: 20181225
  2. RITUXIMAB. [Suspect]
     Active Substance: RITUXIMAB
     Indication: MANTLE CELL LYMPHOMA STAGE IV
     Dosage: 758.0MG/M2 ONCE/SINGLE ADMINISTRATION
     Route: 042
     Dates: start: 20181101, end: 20181101
  3. ASPIRIN. [Concomitant]
     Active Substance: ASPIRIN
     Indication: CARDIOVASCULAR EVENT PROPHYLAXIS
     Route: 048
     Dates: start: 20181121
  4. BENDAMUSTINE [Suspect]
     Active Substance: BENDAMUSTINE
     Indication: MANTLE CELL LYMPHOMA STAGE IV
     Dosage: 182.0MG/M2 ONCE/SINGLE ADMINISTRATION
     Route: 042
     Dates: start: 20181227, end: 20181227
  5. GRANISETRON [Concomitant]
     Active Substance: GRANISETRON
     Indication: PREMEDICATION
     Dosage: 10.0MG AS REQUIRED
     Route: 058
     Dates: start: 20181101
  6. CLOPIDOGREL [Concomitant]
     Active Substance: CLOPIDOGREL BISULFATE
     Indication: ACUTE MYOCARDIAL INFARCTION
     Route: 048
     Dates: start: 20181204
  7. ALLOPURINOL. [Concomitant]
     Active Substance: ALLOPURINOL
     Indication: BLOOD URIC ACID DECREASED
     Route: 048
     Dates: start: 201810
  8. DIPHENHYDRAMINE HYDROCHLORIDE. [Concomitant]
     Active Substance: DIPHENHYDRAMINE HYDROCHLORIDE
     Indication: PREMEDICATION
     Dosage: 50.0MG AS REQUIRED
     Route: 042
     Dates: start: 20181101
  9. ZOFRAN [Concomitant]
     Active Substance: ONDANSETRON HYDROCHLORIDE
     Indication: NAUSEA
     Dosage: 8.0MG AS REQUIRED
     Route: 042
     Dates: start: 20190103, end: 20190123
  10. BENDAMUSTINE [Suspect]
     Active Substance: BENDAMUSTINE
     Indication: MANTLE CELL LYMPHOMA STAGE IV
     Dosage: 182.0MG/M2 ONCE/SINGLE ADMINISTRATION
     Route: 042
     Dates: start: 20181101, end: 20181101
  11. RITUXIMAB. [Suspect]
     Active Substance: RITUXIMAB
     Indication: MANTLE CELL LYMPHOMA STAGE IV
     Dosage: 183.0MG/M2 ONCE/SINGLE ADMINISTRATION
     Route: 042
     Dates: start: 20181128, end: 20181128
  12. DOCUSATE SODIUM. [Concomitant]
     Active Substance: DOCUSATE SODIUM
     Indication: CONSTIPATION
     Dosage: 1.0DF AS REQUIRED
     Route: 048
     Dates: start: 201810
  13. FLOMAX [Concomitant]
     Active Substance: TAMSULOSIN HYDROCHLORIDE
     Indication: PROSTATOMEGALY
     Route: 048
     Dates: start: 201810
  14. ACETAMINOPHEN. [Concomitant]
     Active Substance: ACETAMINOPHEN
     Indication: PREMEDICATION
     Dosage: 650.0MG AS REQUIRED
     Route: 048
     Dates: start: 20181101
  15. BENDAMUSTINE [Suspect]
     Active Substance: BENDAMUSTINE
     Indication: MANTLE CELL LYMPHOMA STAGE IV
     Dosage: 182.0MG/M2 ONCE/SINGLE ADMINISTRATION
     Route: 042
     Dates: start: 20181129, end: 20181129
  16. NORMAL SALINE [Concomitant]
     Active Substance: SODIUM CHLORIDE
     Indication: SKIN TURGOR DECREASED
     Dosage: 1000.0ML AS REQUIRED
     Route: 042
     Dates: start: 20190103, end: 20190125
  17. NORMAL SALINE [Concomitant]
     Active Substance: SODIUM CHLORIDE
     Indication: PROPHYLAXIS AGAINST DEHYDRATION
     Dosage: 1000.0ML AS REQUIRED
     Route: 042
     Dates: start: 20190103, end: 20190125
  18. ACALABRUTINIB. [Suspect]
     Active Substance: ACALABRUTINIB
     Indication: MANTLE CELL LYMPHOMA STAGE IV
     Route: 048
     Dates: start: 20181101, end: 20181127
  19. BENDAMUSTINE [Suspect]
     Active Substance: BENDAMUSTINE
     Indication: MANTLE CELL LYMPHOMA STAGE IV
     Dosage: 182.0MG/M2 ONCE/SINGLE ADMINISTRATION
     Route: 042
     Dates: start: 20181226, end: 20181226
  20. DEXAMETHASONE. [Concomitant]
     Active Substance: DEXAMETHASONE
     Indication: PREMEDICATION
     Dosage: 10.0MG AS REQUIRED
     Route: 042
     Dates: start: 20181101
  21. NORMAL SALINE [Concomitant]
     Active Substance: SODIUM CHLORIDE
     Indication: PROPHYLAXIS AGAINST DEHYDRATION
     Route: 042
     Dates: start: 20181128, end: 20181128
  22. NORMAL SALINE [Concomitant]
     Active Substance: SODIUM CHLORIDE
     Indication: SKIN TURGOR DECREASED
     Route: 042
     Dates: start: 20181226, end: 20181226
  23. NORMAL SALINE [Concomitant]
     Active Substance: SODIUM CHLORIDE
     Indication: PROPHYLAXIS AGAINST DEHYDRATION
     Route: 042
     Dates: start: 20181226, end: 20181226
  24. BENDAMUSTINE [Suspect]
     Active Substance: BENDAMUSTINE
     Indication: MANTLE CELL LYMPHOMA STAGE IV
     Dosage: 182.0MG/M2 ONCE/SINGLE ADMINISTRATION
     Route: 042
     Dates: start: 20181102, end: 20181102
  25. APREPITANT. [Concomitant]
     Active Substance: APREPITANT
     Indication: PREMEDICATION
     Dosage: 130.0MG AS REQUIRED
     Route: 042
     Dates: start: 20181101
  26. NORMAL SALINE [Concomitant]
     Active Substance: SODIUM CHLORIDE
     Indication: SKIN TURGOR DECREASED
     Route: 042
     Dates: start: 20181128, end: 20181128
  27. ACALABRUTINIB. [Suspect]
     Active Substance: ACALABRUTINIB
     Indication: MANTLE CELL LYMPHOMA STAGE IV
     Route: 048
     Dates: start: 20181226, end: 20190122

REACTIONS (1)
  - Pancytopenia [Recovered/Resolved]

NARRATIVE: CASE EVENT DATE: 20190129
